FAERS Safety Report 8035475-2 (Version None)
Quarter: 2012Q1

REPORT INFORMATION
  Report Type: 
  Country: None (occurrence: None)
  Receive Date: 20120110
  Receipt Date: 20120110
  Transmission Date: 20120608
  Serious: Yes (Hospitalization)
  Sender: FDA-Public Use
  Company Number: None

PATIENT
  Sex: Male
  Weight: 161.9 kg

DRUGS (1)
  1. ONGLYZA [Suspect]
     Indication: DIABETES MELLITUS
     Dosage: ONGLYZA 5 MG DAILY PO
     Route: 048
     Dates: start: 20120104, end: 20120105

REACTIONS (1)
  - DRUG HYPERSENSITIVITY [None]
